FAERS Safety Report 8483410-5 (Version None)
Quarter: 2012Q3

REPORT INFORMATION
  Report Type: 
  Country: None (occurrence: None)
  Receive Date: 20120702
  Receipt Date: 20120625
  Transmission Date: 20120928
  Serious: Yes (Hospitalization)
  Sender: FDA-Public Use
  Company Number: JP-PFIZER INC-2012076311

PATIENT
  Age: 77 Year
  Sex: Male
  Weight: 48 kg

DRUGS (17)
  1. TEMSIROLIMUS [Suspect]
     Dosage: 25 MG, UNK
     Dates: start: 20110627
  2. GASMOTIN [Concomitant]
     Dosage: 5 MG, 3X/DAY
     Route: 048
  3. CHLOR-TRIMETON [Concomitant]
     Indication: PROPHYLAXIS
     Dosage: 10 MG, 1X/DAY
     Route: 042
  4. TRAMADOL HYDROCHLORIDE [Concomitant]
     Indication: RENAL CELL CARCINOMA
     Dosage: 25 MG, 3X/DAY
     Route: 048
  5. TEMSIROLIMUS [Suspect]
     Dosage: 25 MG, UNK
     Dates: start: 20110607
  6. TEMSIROLIMUS [Suspect]
     Dosage: 20 MG, UNK
     Dates: start: 20110801
  7. TEMSIROLIMUS [Suspect]
     Dosage: 20 MG, UNK
     Dates: start: 20110815
  8. FAMOTIDINE [Concomitant]
     Dosage: 20 MG, 1X/DAY
     Route: 048
  9. ETODOLAC [Concomitant]
     Indication: RENAL CELL CARCINOMA
     Dosage: 200 MG, 2X/DAY
     Route: 048
  10. PL GRAN. [Concomitant]
     Indication: NASOPHARYNGITIS
     Dosage: 1 G, 3X/DAY
     Route: 048
     Dates: end: 20110606
  11. TEMSIROLIMUS [Suspect]
     Indication: RENAL CELL CARCINOMA
     Dosage: 25 MG, UNK
     Dates: start: 20110531
  12. TEMSIROLIMUS [Suspect]
     Dosage: 20 MG, UNK
     Dates: start: 20110725
  13. TEMSIROLIMUS [Suspect]
     Dosage: 20 MG, UNK
     Dates: start: 20110808
  14. MS HOT PACK [Concomitant]
     Indication: RENAL CELL CARCINOMA
     Dosage: UNK
  15. MAGMITT [Concomitant]
     Dosage: 2 DF, 3X/DAY
     Route: 048
     Dates: start: 20110602
  16. PYRINAZIN [Concomitant]
     Indication: RENAL CELL CARCINOMA
     Dosage: 0.3 G, 3X/DAY
     Route: 048
  17. CEFAZOLIN SODIUM [Concomitant]
     Indication: DIARRHOEA
     Dosage: 1 DF, 3X/DAY
     Route: 048

REACTIONS (1)
  - HYPERKALAEMIA [None]
